FAERS Safety Report 25751014 (Version 1)
Quarter: 2025Q3

REPORT INFORMATION
  Report Type: Spontaneous
  Country: US (occurrence: None)
  Receive Date: 20250830
  Receipt Date: 20250830
  Transmission Date: 20251021
  Serious: Yes (Life-Threatening, Hospitalization, Disabling, Other)
  Sender: FDA-CTU
  Company Number: None

PATIENT
  Age: 31 Year
  Sex: Female
  Weight: 71.1 kg

DRUGS (9)
  1. REGLAN [Suspect]
     Active Substance: METOCLOPRAMIDE HYDROCHLORIDE
     Indication: Migraine
     Route: 042
     Dates: start: 20250830, end: 20250830
  2. METHYLPHENIDATE [Concomitant]
     Active Substance: METHYLPHENIDATE
  3. VILAZEDONE 10MG [Concomitant]
  4. VITAMIN D [Concomitant]
     Active Substance: VITAMIN D NOS
  5. VITAMINS [Concomitant]
     Active Substance: VITAMINS
  6. PROBIOTICS NOS [Concomitant]
     Active Substance: PROBIOTICS NOS
  7. FIBER THERAPY (CALCIUM POLYCARBOPHIL) [Concomitant]
     Active Substance: CALCIUM POLYCARBOPHIL
  8. WHEY [Concomitant]
     Active Substance: WHEY
  9. ELECTROLYTE  SUPPLEMENTS [Concomitant]

REACTIONS (9)
  - Akathisia [None]
  - Panic attack [None]
  - Confusional state [None]
  - Agitation [None]
  - Suicidal ideation [None]
  - Intrusive thoughts [None]
  - Homicidal ideation [None]
  - Seizure [None]
  - Hypoaesthesia oral [None]

NARRATIVE: CASE EVENT DATE: 20250830
